FAERS Safety Report 9649369 (Version 1)
Quarter: 2013Q4

REPORT INFORMATION
  Report Type: Spontaneous
  Country: US (occurrence: US)
  Receive Date: 20131028
  Receipt Date: 20131028
  Transmission Date: 20140711
  Serious: No
  Sender: FDA-Public Use
  Company Number: US-JNJFOC-20131010461

PATIENT
  Age: 66 Year
  Sex: Female
  Weight: 77.11 kg

DRUGS (13)
  1. INVEGA SUSTENNA [Suspect]
     Indication: SCHIZOAFFECTIVE DISORDER
     Route: 030
     Dates: start: 2012
  2. INVEGA SUSTENNA [Suspect]
     Indication: BIPOLAR DISORDER
     Route: 030
     Dates: start: 2012
  3. METFORMIN [Concomitant]
     Indication: TYPE 2 DIABETES MELLITUS
     Route: 048
     Dates: start: 2013
  4. MELOXICAM [Concomitant]
     Indication: BURSITIS
     Route: 048
     Dates: start: 2013
  5. DEPAKOTE [Concomitant]
     Indication: MENTAL DISORDER
     Route: 048
  6. WELLBUTRIN [Concomitant]
     Indication: MENTAL DISORDER
     Route: 048
  7. LORAZEPAM [Concomitant]
     Indication: PRODUCT USED FOR UNKNOWN INDICATION
     Route: 048
  8. ATORVASTATIN [Concomitant]
     Indication: BLOOD CHOLESTEROL INCREASED
     Route: 065
  9. ATORVASTATIN [Concomitant]
     Indication: HYPERTENSION
     Route: 065
  10. AMANTADINE [Concomitant]
     Indication: PROPHYLAXIS
     Route: 048
  11. DEPAKOTE [Concomitant]
     Indication: MENTAL DISORDER
     Route: 048
  12. LOSARTAN/HYDROCHLOROTHIAZIDE [Concomitant]
     Indication: BLOOD CHOLESTEROL
     Route: 048
  13. LOSARTAN/HYDROCHLOROTHIAZIDE [Concomitant]
     Indication: HYPERTENSION
     Route: 048

REACTIONS (5)
  - Malaise [Unknown]
  - Gait disturbance [Not Recovered/Not Resolved]
  - Micturition disorder [Not Recovered/Not Resolved]
  - Bursitis [Not Recovered/Not Resolved]
  - Pyrexia [Unknown]
